FAERS Safety Report 14348079 (Version 6)
Quarter: 2022Q3

REPORT INFORMATION
  Report Type: Report from Study
  Country: US (occurrence: US)
  Receive Date: 20180103
  Receipt Date: 20220913
  Transmission Date: 20221027
  Serious: Yes (Other)
  Sender: FDA-Public Use
  Company Number: US-ABBVIE-17P-163-2023235-00

PATIENT
  Age: 75 Year
  Sex: Male

DRUGS (8)
  1. LUPRON DEPOT [Suspect]
     Active Substance: LEUPROLIDE ACETATE
     Indication: Prostate cancer
     Route: 030
     Dates: start: 20160622
  2. XTANDI [Suspect]
     Active Substance: ENZALUTAMIDE
     Indication: Prostate cancer
     Route: 048
     Dates: start: 20161128
  3. XTANDI [Suspect]
     Active Substance: ENZALUTAMIDE
     Route: 048
  4. XTANDI [Suspect]
     Active Substance: ENZALUTAMIDE
     Route: 048
  5. XTANDI [Suspect]
     Active Substance: ENZALUTAMIDE
     Route: 048
  6. XTANDI [Suspect]
     Active Substance: ENZALUTAMIDE
     Route: 048
  7. XTANDI [Suspect]
     Active Substance: ENZALUTAMIDE
     Route: 048
  8. XTANDI [Suspect]
     Active Substance: ENZALUTAMIDE
     Route: 048
     Dates: start: 202009

REACTIONS (46)
  - Respiratory tract infection [Unknown]
  - Fatigue [Recovered/Resolved]
  - Flatulence [Unknown]
  - Constipation [Unknown]
  - Constipation [Not Recovered/Not Resolved]
  - Muscular weakness [Unknown]
  - Muscle fatigue [Unknown]
  - Asthenia [Recovered/Resolved]
  - Hypertension [Unknown]
  - Fatigue [Recovered/Resolved]
  - Flushing [Unknown]
  - Fatigue [Not Recovered/Not Resolved]
  - Asthenia [Recovered/Resolved]
  - Constipation [Unknown]
  - Asthenia [Recovered/Resolved]
  - Asthenia [Not Recovered/Not Resolved]
  - Hot flush [Recovered/Resolved]
  - Hot flush [Unknown]
  - Weight decreased [Unknown]
  - Sinusitis [Unknown]
  - Nasopharyngitis [Unknown]
  - Nasopharyngitis [Recovered/Resolved]
  - Gastric disorder [Unknown]
  - Fatigue [Unknown]
  - Constipation [Not Recovered/Not Resolved]
  - Diarrhoea [Not Recovered/Not Resolved]
  - Diarrhoea [Not Recovered/Not Resolved]
  - Constipation [Not Recovered/Not Resolved]
  - Asthenia [Unknown]
  - Constipation [Unknown]
  - Diarrhoea [Not Recovered/Not Resolved]
  - Diarrhoea [Recovering/Resolving]
  - Constipation [Recovering/Resolving]
  - Sinusitis [Unknown]
  - Constipation [Unknown]
  - Weight decreased [Unknown]
  - Bowel movement irregularity [Not Recovered/Not Resolved]
  - Muscle strength abnormal [Unknown]
  - Gastric disorder [Unknown]
  - Respiratory tract infection [Unknown]
  - Flatulence [Unknown]
  - Sinusitis [Unknown]
  - Weight decreased [Unknown]
  - Asthenia [Unknown]
  - Hypertension [Unknown]
  - Hot flush [Unknown]

NARRATIVE: CASE EVENT DATE: 20161129
